FAERS Safety Report 9154744 (Version 1)
Quarter: 2013Q1

REPORT INFORMATION
  Report Type: Spontaneous
  Country: US (occurrence: None)
  Receive Date: 20130212
  Receipt Date: 20130212
  Transmission Date: 20140127
  Serious: Yes (Other)
  Sender: FDA-Public Use
  Company Number: CIP-2013-0037

PATIENT
  Sex: 0

DRUGS (2)
  1. CARBOPLATIN [Suspect]
     Indication: NON-SMALL CELL LUNG CANCER
     Dosage: AUC 6 (DAY 1 EACH 21 DAY CYCLE), INTRAVENOUS (NOT OTHERWISE SPECIFIED)
  2. IXABEPILONE [Suspect]
     Indication: NON-SMALL CELL LUNG CANCER
     Dosage: (30 MG/M2, OVER  3 HOURS ON DAY 1

REACTIONS (1)
  - Dehydration [None]
